FAERS Safety Report 8424081-3 (Version None)
Quarter: 2012Q2

REPORT INFORMATION
  Report Type: 
  Country: None (occurrence: None)
  Receive Date: 20120608
  Receipt Date: 20110510
  Transmission Date: 20120825
  Serious: No
  Sender: FDA-Public Use
  Company Number: US-ASTRAZENECA-2011SE27536

PATIENT
  Age: 30 Year
  Sex: Female
  Weight: 52.6 kg

DRUGS (3)
  1. PULMICORT FLEXHALER [Suspect]
     Indication: SINUSITIS
     Route: 055
     Dates: start: 20110508
  2. ALBUTEROL [Concomitant]
  3. PULMICORT FLEXHALER [Suspect]
     Indication: ASTHMA
     Route: 055
     Dates: start: 20110508

REACTIONS (3)
  - REACTION TO DRUG EXCIPIENTS [None]
  - ASTHMA [None]
  - MATERNAL EXPOSURE DURING PREGNANCY [None]
